FAERS Safety Report 20401771 (Version 2)
Quarter: 2022Q1

REPORT INFORMATION
  Report Type: Spontaneous
  Country: US (occurrence: US)
  Receive Date: 20220131
  Receipt Date: 20220201
  Transmission Date: 20220423
  Serious: No
  Sender: FDA-Public Use
  Company Number: US-ABBVIE-21K-163-4205724-00

PATIENT
  Sex: Female
  Weight: 51.302 kg

DRUGS (1)
  1. HUMIRA [Suspect]
     Active Substance: ADALIMUMAB
     Indication: Autoimmune disorder
     Route: 058
     Dates: start: 202110

REACTIONS (9)
  - Off label use [Unknown]
  - Pruritus [Unknown]
  - Injection site bruising [Unknown]
  - Rash [Unknown]
  - Rash papular [Unknown]
  - Influenza [Unknown]
  - Vomiting [Unknown]
  - Erythema [Unknown]
  - Device issue [Unknown]

NARRATIVE: CASE EVENT DATE: 20210101
